FAERS Safety Report 7548169-4 (Version None)
Quarter: 2011Q2

REPORT INFORMATION
  Report Type: 
  Country: None (occurrence: None)
  Receive Date: 20110615
  Receipt Date: 20110601
  Transmission Date: 20111010
  Serious: Yes (Hospitalization)
  Sender: FDA-Public Use
  Company Number: US-CELGENEUS-ABX40-07-0318

PATIENT
  Age: 61 Year
  Sex: Female
  Weight: 59.474 kg

DRUGS (9)
  1. ZOFRAN [Concomitant]
     Dosage: 8 MILLIGRAM
     Route: 065
  2. NEULASTA [Concomitant]
     Indication: BREAST CANCER
     Dosage: 6 MILLIGRAM
     Route: 058
  3. ATIVAN [Concomitant]
     Dosage: 1 MILLIGRAM
     Route: 065
  4. DOXORUBICIN HCL [Suspect]
     Indication: BREAST CANCER
     Dosage: 60 MILLIGRAM/SQ. METER
     Route: 065
  5. ABRAXANE [Suspect]
     Indication: BREAST CANCER
     Dosage: 400 MILLIGRAM
     Route: 051
     Dates: start: 20070315
  6. CYCLOPHOSPHAMIDE [Suspect]
     Indication: BREAST CANCER
     Dosage: 600 MILLIGRAM/SQ. METER
     Route: 065
  7. BEVACIZUMAB [Suspect]
     Indication: BREAST CANCER
     Dosage: 620 MILLIGRAM
     Route: 051
     Dates: start: 20070116
  8. COMPAZINE [Concomitant]
     Dosage: 10 MILLIGRAM
     Route: 065
  9. ARANESP [Concomitant]
     Dosage: 200 MICROGRAM
     Route: 065

REACTIONS (17)
  - BILIARY COLIC [None]
  - EPISTAXIS [None]
  - NEOPLASM PROGRESSION [None]
  - BLOOD PRESSURE DIASTOLIC DECREASED [None]
  - FIBRIN D DIMER INCREASED [None]
  - PERIPHERAL SENSORY NEUROPATHY [None]
  - PROTEINURIA [None]
  - TROPONIN INCREASED [None]
  - ATRIAL FIBRILLATION [None]
  - FATIGUE [None]
  - DYSPNOEA [None]
  - NAUSEA [None]
  - BREAST CANCER [None]
  - CHEST PAIN [None]
  - PNEUMONITIS [None]
  - MUCOSAL INFLAMMATION [None]
  - COUGH [None]
